FAERS Safety Report 5727419-0 (Version None)
Quarter: 2008Q2

REPORT INFORMATION
  Report Type: 
  Country: None (occurrence: None)
  Receive Date: 20080505
  Receipt Date: 20080424
  Transmission Date: 20081010
  Serious: Yes (Hospitalization)
  Sender: FDA-Public Use
  Company Number: US-AVENTIS-200811937EU

PATIENT
  Age: 46 Year
  Sex: Male

DRUGS (4)
  1. LASIX [Suspect]
     Indication: CARDIAC FAILURE
     Route: 048
     Dates: start: 20061025, end: 20070114
  2. CODE UNBROKEN [Suspect]
     Indication: CARDIAC FAILURE CHRONIC
     Dosage: DOSE: UNKNOWN DOSAGE
     Route: 048
     Dates: start: 20061206
  3. PRINIVIL [Suspect]
     Indication: CARDIAC FAILURE
     Route: 048
     Dates: start: 20061025, end: 20070215
  4. CARVEDILOL [Concomitant]
     Dates: start: 20070113, end: 20070114

REACTIONS (3)
  - HYPOTENSION [None]
  - NON-CARDIAC CHEST PAIN [None]
  - SYNCOPE [None]
